FAERS Safety Report 5933696-3 (Version None)
Quarter: 2008Q4

REPORT INFORMATION
  Report Type: 
  Country: None (occurrence: None)
  Receive Date: 20081024
  Receipt Date: 20081013
  Transmission Date: 20090506
  Serious: Yes (Other)
  Sender: FDA-Public Use
  Company Number: 2008SP020870

PATIENT
  Age: 2 Month
  Sex: Female

DRUGS (1)
  1. CLARITIN [Suspect]
     Indication: DRUG USE FOR UNKNOWN INDICATION
     Dosage: 10 MG; ; TRMA
     Route: 063
     Dates: start: 20080611, end: 20080611

REACTIONS (2)
  - DRUG EXPOSURE VIA BREAST MILK [None]
  - HYPOTONIC-HYPORESPONSIVE EPISODE [None]
